FAERS Safety Report 4490277-9 (Version None)
Quarter: 2004Q4

REPORT INFORMATION
  Report Type: 
  Country: None (occurrence: None)
  Receive Date: 20041028
  Receipt Date: 20041012
  Transmission Date: 20050328
  Serious: Yes (Hospitalization)
  Sender: FDA-Public Use
  Company Number: 168503

PATIENT
  Age: 50 Year
  Sex: Female

DRUGS (1)
  1. AVONEX [Suspect]
     Indication: MULTIPLE SCLEROSIS
     Dates: start: 20020301, end: 20030501

REACTIONS (7)
  - FALL [None]
  - FEMUR FRACTURE [None]
  - FOOT DEFORMITY [None]
  - INFLUENZA LIKE ILLNESS [None]
  - INJECTION SITE NODULE [None]
  - PATELLA FRACTURE [None]
  - POST PROCEDURAL COMPLICATION [None]
